FAERS Safety Report 19113018 (Version 2)
Quarter: 2022Q1

REPORT INFORMATION
  Report Type: Spontaneous
  Country: US (occurrence: None)
  Receive Date: 20210408
  Receipt Date: 20220202
  Transmission Date: 20220423
  Serious: Yes (Other)
  Sender: FDA-Public Use
  Company Number: 2021A247751

PATIENT
  Age: 623 Month
  Sex: Male
  Weight: 69.9 kg

DRUGS (26)
  1. NEXIUM [Suspect]
     Active Substance: ESOMEPRAZOLE MAGNESIUM
     Indication: Gastrooesophageal reflux disease
     Route: 048
     Dates: start: 2007, end: 2017
  2. NEXIUM [Suspect]
     Active Substance: ESOMEPRAZOLE MAGNESIUM
     Indication: Gastrooesophageal reflux disease
     Dosage: FOR VARIOUS DATES
     Route: 048
  3. NEXIUM [Suspect]
     Active Substance: ESOMEPRAZOLE MAGNESIUM
     Indication: Gastrooesophageal reflux disease
     Dosage: GENERIC
     Route: 065
  4. PRILOSEC [Suspect]
     Active Substance: OMEPRAZOLE MAGNESIUM
     Indication: Gastrooesophageal reflux disease
     Route: 048
     Dates: start: 2007, end: 2017
  5. PRILOSEC [Suspect]
     Active Substance: OMEPRAZOLE MAGNESIUM
     Indication: Gastrooesophageal reflux disease
     Dosage: FOR VARIOUS DATES
     Route: 048
  6. PRILOSEC [Suspect]
     Active Substance: OMEPRAZOLE MAGNESIUM
     Indication: Gastrooesophageal reflux disease
     Dosage: GENERIC
     Route: 065
  7. PREVACID [Suspect]
     Active Substance: LANSOPRAZOLE
     Indication: Gastrooesophageal reflux disease
     Route: 065
     Dates: start: 2003, end: 2006
  8. PREVACID [Suspect]
     Active Substance: LANSOPRAZOLE
     Indication: Gastrooesophageal reflux disease
     Dosage: FOR VARIOUS DATES
     Route: 065
  9. ASPIRIN [Concomitant]
     Active Substance: ASPIRIN
     Indication: Myocardial infarction
  10. METOPROLOL [Concomitant]
     Active Substance: METOPROLOL
     Indication: Myocardial infarction
  11. ROSUVASTATIN [Concomitant]
     Active Substance: ROSUVASTATIN
     Indication: Myocardial infarction
  12. ATORVASTATIN [Concomitant]
     Active Substance: ATORVASTATIN
     Indication: Myocardial infarction
  13. PLAVIX [Concomitant]
     Active Substance: CLOPIDOGREL BISULFATE
     Indication: Myocardial infarction
  14. ACIPHEX [Concomitant]
     Active Substance: RABEPRAZOLE SODIUM
     Indication: Myocardial infarction
  15. AMOXICILLIN [Concomitant]
     Active Substance: AMOXICILLIN
     Indication: Infection
  16. FAMOTIDINE [Concomitant]
     Active Substance: FAMOTIDINE
  17. ZANTAC [Concomitant]
     Active Substance: RANITIDINE HYDROCHLORIDE
  18. TUMS [Concomitant]
     Active Substance: CALCIUM CARBONATE
  19. ROLAIDS [Concomitant]
     Active Substance: CALCIUM CARBONATE\MAGNESIUM HYDROXIDE
  20. ACETAMINOPHEN\HYDROCODONE BITARTRATE [Concomitant]
     Active Substance: ACETAMINOPHEN\HYDROCODONE BITARTRATE
  21. HYDROCORTISONE [Concomitant]
     Active Substance: HYDROCORTISONE
  22. CLOPIDOGREL [Concomitant]
     Active Substance: CLOPIDOGREL BISULFATE
  23. ANUCORT [Concomitant]
  24. DIBUCAIN [Concomitant]
  25. LISINOPRIL [Concomitant]
     Active Substance: LISINOPRIL
  26. NITROGLYCERIN [Concomitant]
     Active Substance: NITROGLYCERIN

REACTIONS (3)
  - Chronic kidney disease [Not Recovered/Not Resolved]
  - Renal failure [Unknown]
  - Rebound acid hypersecretion [Unknown]

NARRATIVE: CASE EVENT DATE: 20170801
